FAERS Safety Report 8342860-8 (Version None)
Quarter: 2012Q2

REPORT INFORMATION
  Report Type: 
  Country: None (occurrence: None)
  Receive Date: 20120508
  Receipt Date: 20120504
  Transmission Date: 20120825
  Serious: No
  Sender: FDA-Public Use
  Company Number: US-PFIZER INC-2012110358

PATIENT
  Sex: Male

DRUGS (1)
  1. SUTENT [Suspect]
     Dosage: UNK

REACTIONS (6)
  - PERSONALITY CHANGE [None]
  - FATIGUE [None]
  - HYPOKINESIA [None]
  - HYPERCHLORHYDRIA [None]
  - DYSPHAGIA [None]
  - SOMNOLENCE [None]
